FAERS Safety Report 15263202 (Version 1)
Quarter: 2018Q3

REPORT INFORMATION
  Report Type: Spontaneous
  Country: FR (occurrence: FR)
  Receive Date: 20180810
  Receipt Date: 20180810
  Transmission Date: 20181010
  Serious: Yes (Other)
  Sender: FDA-Public Use
  Company Number: FR-ROCHE-2167030

PATIENT
  Age: 28 Year
  Sex: Female

DRUGS (12)
  1. NORVIR [Suspect]
     Active Substance: RITONAVIR
     Indication: HIV TEST POSITIVE
     Route: 051
  2. ACIDE FOLIQUE [Concomitant]
     Active Substance: FOLIC ACID
     Route: 065
  3. FUZEON [Suspect]
     Active Substance: ENFUVIRTIDE
     Indication: HIV TEST POSITIVE
     Route: 051
  4. WELLVONE [Suspect]
     Active Substance: ATOVAQUONE
     Indication: PRODUCT USED FOR UNKNOWN INDICATION
     Route: 065
  5. LOVENOX [Concomitant]
     Active Substance: ENOXAPARIN SODIUM
     Route: 065
  6. PREZISTA [Suspect]
     Active Substance: DARUNAVIR ETHANOLATE
     Indication: HIV TEST POSITIVE
     Route: 065
  7. VITAMINE B12 ROCHE [Concomitant]
     Route: 065
  8. NORVIR [Suspect]
     Active Substance: RITONAVIR
     Route: 048
  9. ISENTRESS [Suspect]
     Active Substance: RALTEGRAVIR POTASSIUM
     Indication: HIV TEST POSITIVE
     Route: 051
  10. ISENTRESS [Suspect]
     Active Substance: RALTEGRAVIR POTASSIUM
     Route: 048
  11. ZIAGEN [Suspect]
     Active Substance: ABACAVIR SULFATE
     Indication: HIV TEST POSITIVE
     Route: 065
  12. FUMAFER [Concomitant]
     Active Substance: FERROUS FUMARATE
     Route: 065

REACTIONS (1)
  - Hepatocellular injury [Not Recovered/Not Resolved]

NARRATIVE: CASE EVENT DATE: 201706
